FAERS Safety Report 10009670 (Version 2)
Quarter: 2014Q1

REPORT INFORMATION
  Report Type: Spontaneous
  Country: US (occurrence: US)
  Receive Date: 20140312
  Receipt Date: 20140312
  Transmission Date: 20141002
  Serious: No
  Sender: FDA-Public Use
  Company Number: US-INCYTE CORPORATION-2012IN001655

PATIENT
  Age: 81 Year
  Sex: Male

DRUGS (7)
  1. JAKAFI [Suspect]
     Indication: MYELOFIBROSIS
     Dosage: 5 MG, BID
     Route: 048
     Dates: start: 20120731
  2. AMLODIPINE [Concomitant]
  3. ANAGRELIDE [Concomitant]
  4. PREDNISONE [Concomitant]
  5. FUROSEMIDE [Concomitant]
  6. LOVASTATIN [Concomitant]
  7. TERAZOSIN [Concomitant]

REACTIONS (6)
  - Weight decreased [Unknown]
  - Night sweats [Unknown]
  - Hot flush [Unknown]
  - Feeling cold [Unknown]
  - Asthenia [Unknown]
  - Headache [Unknown]
